FAERS Safety Report 19462642 (Version 1)
Quarter: 2021Q2

REPORT INFORMATION
  Report Type: Spontaneous
  Country: GB (occurrence: IE)
  Receive Date: 20210625
  Receipt Date: 20210625
  Transmission Date: 20210717
  Serious: Yes (Hospitalization)
  Sender: FDA-Public Use
  Company Number: IE-UNICHEM PHARMACEUTICALS (USA) INC-UCM202106-000534

PATIENT
  Sex: Female
  Weight: 2.16 kg

DRUGS (3)
  1. VALSARTAN. [Suspect]
     Active Substance: VALSARTAN
     Indication: FOETAL EXPOSURE DURING PREGNANCY
     Dosage: UNKNOWN
  2. BENZYLPENICILLIN [Concomitant]
     Active Substance: PENICILLIN G
     Indication: PREMATURE BABY
     Dosage: UNKNOWN
  3. GENTAMICIN. [Concomitant]
     Active Substance: GENTAMICIN
     Indication: PREMATURE BABY
     Dosage: UNKNOWN

REACTIONS (14)
  - Anaemia [Recovering/Resolving]
  - Metabolic acidosis [Recovering/Resolving]
  - Failure to thrive [Recovering/Resolving]
  - Muscle contracture [Recovering/Resolving]
  - Hyponatraemia [Recovering/Resolving]
  - Hypertension [Recovering/Resolving]
  - Renal impairment [Recovering/Resolving]
  - Anuria [Recovering/Resolving]
  - Oedema [Recovering/Resolving]
  - Multiple cardiac defects [Recovering/Resolving]
  - Hypoalbuminaemia [Recovering/Resolving]
  - Vomiting [Recovering/Resolving]
  - Intestinal malrotation [Recovering/Resolving]
  - Hypocalcaemia [Recovering/Resolving]
